FAERS Safety Report 11330524 (Version 1)
Quarter: 2015Q3

REPORT INFORMATION
  Report Type: Spontaneous
  Country: US (occurrence: US)
  Receive Date: 20150803
  Receipt Date: 20150803
  Transmission Date: 20151125
  Serious: No
  Sender: FDA-Public Use
  Company Number: US-TAKEDA-2015TUS002118

PATIENT
  Sex: Male

DRUGS (3)
  1. TYLENOL [Concomitant]
     Active Substance: ACETAMINOPHEN
     Indication: GOUT
     Dosage: PRN
     Route: 048
     Dates: start: 20150214, end: 20150215
  2. COLCRYS [Suspect]
     Active Substance: COLCHICINE
     Dosage: 2 DF IN MORNING
     Route: 048
     Dates: start: 20150215, end: 20150215
  3. COLCRYS [Suspect]
     Active Substance: COLCHICINE
     Indication: GOUT
     Dosage: 2 TABLETS THEN 1 TAB 1 HR LATER
     Route: 048
     Dates: start: 20150214, end: 20150214

REACTIONS (1)
  - Diarrhoea [Not Recovered/Not Resolved]

NARRATIVE: CASE EVENT DATE: 20150215
